FAERS Safety Report 5109041-2 (Version None)
Quarter: 2006Q3

REPORT INFORMATION
  Report Type: 
  Country: None (occurrence: None)
  Receive Date: 20060918
  Receipt Date: 20060906
  Transmission Date: 20061208
  Serious: Yes (Death)
  Sender: FDA-Public Use
  Company Number: 2005148746

PATIENT
  Age: 61 Year
  Sex: Female
  Weight: 68.0396 kg

DRUGS (2)
  1. BEXTRA [Suspect]
     Indication: BACK PAIN
     Dosage: 20 MG,3 OR 4 TIMES A DAY
     Dates: start: 20031001, end: 20031024
  2. BEXTRA [Suspect]
     Indication: MUSCULOSKELETAL PAIN
     Dosage: 20 MG,3 OR 4 TIMES A DAY
     Dates: start: 20031001, end: 20031024

REACTIONS (1)
  - MYOCARDIAL INFARCTION [None]
